FAERS Safety Report 8614573-6 (Version None)
Quarter: 2012Q3

REPORT INFORMATION
  Report Type: 
  Country: None (occurrence: None)
  Receive Date: 20120823
  Receipt Date: 20120816
  Transmission Date: 20120928
  Serious: Yes (Other)
  Sender: FDA-Public Use
  Company Number: IT-JNJFOC-20120808015

PATIENT
  Age: 46 Year
  Sex: Male

DRUGS (3)
  1. MINIAS [Suspect]
     Indication: SELF INJURIOUS BEHAVIOUR
     Route: 048
     Dates: start: 20120816, end: 20120816
  2. HALOPERIDOL LACTATE [Suspect]
     Indication: PRODUCT USED FOR UNKNOWN INDICATION
     Route: 048
     Dates: start: 20120816, end: 20120816
  3. EN [Suspect]
     Indication: SELF INJURIOUS BEHAVIOUR
     Route: 048
     Dates: start: 20120816, end: 20120816

REACTIONS (2)
  - SELF INJURIOUS BEHAVIOUR [None]
  - SLUGGISHNESS [None]
